FAERS Safety Report 6663994-X (Version None)
Quarter: 2010Q2

REPORT INFORMATION
  Report Type: 
  Country: None (occurrence: None)
  Receive Date: 20100401
  Receipt Date: 20100323
  Transmission Date: 20101027
  Serious: Yes (Other)
  Sender: FDA-Public Use
  Company Number: US-PFIZER INC-2010037369

PATIENT
  Sex: Female

DRUGS (3)
  1. MEDROXYPROGESTERONE ACETATE [Suspect]
     Indication: HORMONE REPLACEMENT THERAPY
     Dosage: 2.5 MG, 1X/DAY
     Route: 048
     Dates: start: 20000101
  2. PULMICORT [Concomitant]
     Indication: ASTHMA
     Dosage: UNK
  3. XOPENEX [Concomitant]
     Indication: ASTHMA
     Dosage: UNK

REACTIONS (2)
  - NAUSEA [None]
  - PHARYNGEAL OEDEMA [None]
